FAERS Safety Report 6641501-5 (Version None)
Quarter: 2010Q1

REPORT INFORMATION
  Report Type: 
  Country: None (occurrence: None)
  Receive Date: 20100317
  Receipt Date: 20100317
  Transmission Date: 20100710
  Serious: Yes (Other)
  Sender: FDA-Public Use
  Company Number: None

PATIENT
  Age: 62 Year
  Sex: Female
  Weight: 107.3 kg

DRUGS (14)
  1. INSULIN, GLARGINE [Suspect]
     Indication: TYPE 1 DIABETES MELLITUS
     Dosage: 25 UNITS QHS SQ
     Route: 058
     Dates: start: 20091222
  2. HEPARIN [Concomitant]
  3. AMLODIPINE [Concomitant]
  4. AMOXICILLIN/CLAV [Concomitant]
  5. ANASTRAZOLE [Concomitant]
  6. CITRIC ACID/SODIUM CITRATE [Concomitant]
  7. CODEINE SULFATE [Concomitant]
  8. DOCUSATE [Concomitant]
  9. EPOETIN [Concomitant]
  10. DOCUSATE [Concomitant]
  11. EPOETIN [Concomitant]
  12. ESCITALOPRAM [Concomitant]
  13. HYDRALIZINE [Concomitant]
  14. LANSOPRAZOLE [Concomitant]

REACTIONS (1)
  - BLOOD GLUCOSE DECREASED [None]
